FAERS Safety Report 7177483-X (Version None)
Quarter: 2010Q4

REPORT INFORMATION
  Report Type: 
  Country: None (occurrence: None)
  Receive Date: 20101123
  Receipt Date: 20101006
  Transmission Date: 20110411
  Serious: No
  Sender: FDA-Public Use
  Company Number: 019955

PATIENT
  Sex: Female
  Weight: 127 kg

DRUGS (3)
  1. CIMZIA [Suspect]
     Indication: CROHN'S DISEASE
     Dosage: (400 MG 1X/MONTH SUBCUTANEOUS)
     Route: 058
     Dates: start: 20100501
  2. TOPAMAX [Concomitant]
  3. CARBAMAZEPINE [Concomitant]

REACTIONS (3)
  - ABDOMINAL PAIN LOWER [None]
  - DRUG INEFFECTIVE [None]
  - VOMITING [None]
